FAERS Safety Report 4906055-X (Version None)
Quarter: 2006Q1

REPORT INFORMATION
  Report Type: 
  Country: None (occurrence: None)
  Receive Date: 20060207
  Receipt Date: 20060127
  Transmission Date: 20060701
  Serious: Yes (Hospitalization)
  Sender: FDA-Public Use
  Company Number: GXKR2006CA00720

PATIENT
  Age: 49 Year
  Sex: Female

DRUGS (1)
  1. ASCORBIC ACID [Suspect]
     Indication: ASTHENIA
     Dosage: 1 DF, ORAL
     Route: 048

REACTIONS (1)
  - HYPERGLYCAEMIA [None]
